FAERS Safety Report 10060853 (Version 1)
Quarter: 2014Q2

REPORT INFORMATION
  Report Type: Report from Study
  Country: US (occurrence: US)
  Receive Date: 20140404
  Receipt Date: 20140404
  Transmission Date: 20141212
  Serious: Yes (Hospitalization, Other)
  Sender: FDA-Public Use
  Company Number: US-ABBVIE-14P-163-1218353-00

PATIENT
  Age: 49 Year
  Sex: Male
  Weight: 103.06 kg

DRUGS (16)
  1. HUMIRA [Suspect]
     Indication: PSORIATIC ARTHROPATHY
     Dates: start: 2013, end: 201402
  2. HUMIRA [Suspect]
     Indication: PSORIASIS
  3. LANTUS [Concomitant]
     Indication: DIABETES MELLITUS
  4. FOLIC ACID [Concomitant]
     Indication: PRODUCT USED FOR UNKNOWN INDICATION
  5. VITAMIN D [Concomitant]
     Indication: PRODUCT USED FOR UNKNOWN INDICATION
  6. RESTASIS [Concomitant]
     Indication: PRODUCT USED FOR UNKNOWN INDICATION
  7. UNNAMED MEDICATION [Concomitant]
     Indication: ORAL DISORDER
  8. UNNAMED MEDICATION [Concomitant]
     Indication: ECZEMA
  9. ASPIRIN [Concomitant]
     Indication: CARDIAC DISORDER
  10. UNNAMED MEDICATION [Concomitant]
     Indication: GASTROOESOPHAGEAL REFLUX DISEASE
  11. UNNAMED MEDICATION [Concomitant]
     Indication: SINUS DISORDER
  12. SYNTHROID [Concomitant]
     Indication: BASEDOW^S DISEASE
  13. DEPAKOTE [Concomitant]
     Indication: PRODUCT USED FOR UNKNOWN INDICATION
  14. UNNAMED MEDICATION [Concomitant]
     Indication: ROSACEA
     Route: 061
  15. UNNAMED MEDICATION [Concomitant]
     Indication: PSORIASIS
     Route: 061
  16. UNNAMED MEDICATION [Concomitant]
     Indication: PAIN

REACTIONS (5)
  - Glycosylated haemoglobin increased [Recovered/Resolved]
  - Diabetes mellitus [Not Recovered/Not Resolved]
  - Blood pressure increased [Not Recovered/Not Resolved]
  - Blood glucose increased [Recovered/Resolved]
  - Blood glucose abnormal [Recovered/Resolved]
